FAERS Safety Report 5405237-0 (Version None)
Quarter: 2007Q3

REPORT INFORMATION
  Report Type: 
  Country: None (occurrence: None)
  Receive Date: 20070803
  Receipt Date: 20070723
  Transmission Date: 20080115
  Serious: Yes (Death, Hospitalization, Other)
  Sender: FDA-Public Use
  Company Number: US-ROCHE-508427

PATIENT
  Age: 65 Year
  Sex: Male
  Weight: 104 kg

DRUGS (20)
  1. CAPECITABINE [Suspect]
     Dosage: GIVEN FOR 2 WEEKS OUT OF EVERY 4 WEEKS.
     Route: 065
     Dates: start: 20070610, end: 20070617
  2. TAXOTERE [Suspect]
     Dosage: GIVEN FOR 3 OUT OF EVERY 4 WEEKS.
     Route: 065
     Dates: start: 20070606, end: 20070613
  3. OXYCODONE HCL [Concomitant]
     Dosage: FROM 11 JUNE 2007 UNTIL UNSPECIFIED DATE: 15-20 MG EVERY 2-3 HOURS AS PER NEED. AS OF 20 JUNE 2007 +
     Dates: start: 20070611
  4. FENTANYL [Concomitant]
     Dosage: FROM 11 JUNE 2007 UNTIL UNSPECIFIED DATE: 50 MG EVERY THREE DAYS. AS OF 20 JUNE 2007 RESTART AT LOW+
     Dates: start: 20070611
  5. LASIX [Concomitant]
     Dosage: GIVEN IN THE MORNING.
     Dates: start: 20070612
  6. 1 DRUG [Concomitant]
     Dosage: DRUG REPORTED AS TERAZORIN.
  7. DECADRON [Concomitant]
  8. ENALAPRIL MALEATE [Concomitant]
  9. PROSCAR [Concomitant]
  10. PREVACID [Concomitant]
  11. PRAVACHOL [Concomitant]
  12. METOPROLOL SUCCINATE [Concomitant]
     Dosage: GIVEN IN THE MORNING.
  13. METFORMIN HCL [Concomitant]
  14. PLETAL [Concomitant]
  15. ASPIRIN [Concomitant]
  16. HYDROCORTISONE [Concomitant]
     Dates: start: 20070620
  17. INSULIN [Concomitant]
  18. OXYCODONE HCL [Concomitant]
     Dates: start: 20070611
  19. LEVOFLOXACIN [Concomitant]
     Dates: start: 20070620
  20. VORICONAZOLE [Concomitant]
     Dates: start: 20070611

REACTIONS (8)
  - BLOOD GLUCOSE INCREASED [None]
  - DEATH [None]
  - DISEASE PROGRESSION [None]
  - DYSPNOEA [None]
  - HYPONATRAEMIA [None]
  - MENTAL STATUS CHANGES [None]
  - PNEUMONIA [None]
  - PSEUDOMONAS INFECTION [None]
